FAERS Safety Report 21165074 (Version 2)
Quarter: 2022Q3

REPORT INFORMATION
  Report Type: Report from Study
  Country: ZA (occurrence: ZA)
  Receive Date: 20220803
  Receipt Date: 20220823
  Transmission Date: 20221027
  Serious: Yes (Other)
  Sender: FDA-Public Use
  Company Number: ZA-BAYER-2022A106318

PATIENT
  Sex: Female

DRUGS (2)
  1. EYLEA [Suspect]
     Active Substance: AFLIBERCEPT
     Indication: Diabetic retinal oedema
     Dosage: 1XVIAL IN RIGHT EYE, SOLUTION FOR INJECTION
     Dates: start: 20220407
  2. EYLEA [Suspect]
     Active Substance: AFLIBERCEPT
     Dosage: UNK, LAST DOSE RECEIVED; SOLUTION FOR INJECTION
     Dates: start: 20220511

REACTIONS (2)
  - Malaise [Unknown]
  - Cerebrovascular accident [Unknown]

NARRATIVE: CASE EVENT DATE: 20220614
